FAERS Safety Report 12949312 (Version 1)
Quarter: 2016Q4

REPORT INFORMATION
  Report Type: Spontaneous
  Country: BR (occurrence: BR)
  Receive Date: 20161116
  Receipt Date: 20161116
  Transmission Date: 20170207
  Serious: Yes (Hospitalization)
  Sender: FDA-Public Use
  Company Number: BR-DSJP-DSU-2016-138463

PATIENT

DRUGS (7)
  1. MASACIN [Concomitant]
     Indication: BLOOD PRESSURE ABNORMAL
     Dosage: 5 MG, QD
     Route: 048
     Dates: start: 2016
  2. NORVASC [Concomitant]
     Active Substance: AMLODIPINE BESYLATE
     Indication: PRODUCT USED FOR UNKNOWN INDICATION
     Dosage: 5 MG, UNK
  3. NEBLOCK [Concomitant]
     Active Substance: NEBIVOLOL HYDROCHLORIDE
     Indication: BLOOD PRESSURE ABNORMAL
     Dosage: 5 MG, QD
     Route: 048
     Dates: start: 201608
  4. RIVOTRIL [Concomitant]
     Active Substance: CLONAZEPAM
     Indication: ANXIETY
     Dosage: 1 DF, QD
     Route: 048
  5. POGMAPIL [Concomitant]
     Indication: HEART RATE IRREGULAR
     Dosage: 5 MG, QD
     Route: 048
     Dates: start: 2016
  6. OLMETEC HCT [Suspect]
     Active Substance: HYDROCHLOROTHIAZIDE\OLMESARTAN MEDOXOMIL
     Indication: HYPERTENSION
     Dosage: 40/12.5 MG,  QD
     Route: 048
     Dates: start: 201609
  7. PANTOPRAZOLE [Concomitant]
     Active Substance: PANTOPRAZOLE SODIUM
     Indication: ABDOMINAL DISCOMFORT
     Dosage: 1 DF, QD
     Route: 048
     Dates: start: 20161026

REACTIONS (4)
  - Blood pressure fluctuation [Unknown]
  - Spinal pain [Unknown]
  - Hypertension [Unknown]
  - Urinary tract infection [Unknown]

NARRATIVE: CASE EVENT DATE: 2016
